FAERS Safety Report 17559255 (Version 13)
Quarter: 2021Q3

REPORT INFORMATION
  Report Type: Spontaneous
  Country: CA (occurrence: CA)
  Receive Date: 20200319
  Receipt Date: 20210723
  Transmission Date: 20211014
  Serious: Yes (Hospitalization, Other)
  Sender: FDA-Public Use
  Company Number: CA-CELLTRION INC.-2020CA018398

PATIENT

DRUGS (7)
  1. INFLECTRA [Suspect]
     Active Substance: INFLIXIMAB-DYYB
     Dosage: 500 MG, 0, 2, 6 WEEKS, THEN EVERY 8 WEEKS
     Route: 042
     Dates: start: 20200309
  2. INFLECTRA [Suspect]
     Active Substance: INFLIXIMAB-DYYB
     Dosage: 500 MG, 0, 2, 6 WEEKS, THEN EVERY 8 WEEKS
     Route: 042
     Dates: start: 20200205
  3. INFLECTRA [Suspect]
     Active Substance: INFLIXIMAB-DYYB
     Dosage: 400 MG RE?INDUCTION AT 0,2 AND 6 WEEKS, MAINTENANCE: EVERY 8 WEEKS
     Route: 042
     Dates: start: 20210511
  4. INFLECTRA [Suspect]
     Active Substance: INFLIXIMAB-DYYB
     Dosage: 500 MG, 0, 2, 6 WEEKS, THEN EVERY 8 WEEKS
     Route: 042
     Dates: start: 20200122
  5. BENADRYL [Concomitant]
     Active Substance: DIPHENHYDRAMINE HYDROCHLORIDE
     Indication: PREMEDICATION
     Dosage: 25 MG, UNK
     Route: 048
     Dates: start: 20200309
  6. INFLECTRA [Suspect]
     Active Substance: INFLIXIMAB-DYYB
     Indication: COLITIS ULCERATIVE
     Dosage: 500 MG, 0, 2, 6 WEEKS, THEN EVERY 8 WEEKS
     Route: 042
     Dates: start: 20200122
  7. HYDROCORTISONE. [Concomitant]
     Active Substance: HYDROCORTISONE
     Indication: PREMEDICATION
     Dosage: 100 MG, UNK
     Route: 042
     Dates: start: 20200309

REACTIONS (21)
  - Dysphagia [Unknown]
  - Blood pressure fluctuation [Unknown]
  - Pneumonia [Unknown]
  - Dizziness [Unknown]
  - Myalgia [Unknown]
  - Drug intolerance [Unknown]
  - Asthenia [Unknown]
  - Hypertension [Unknown]
  - Headache [Unknown]
  - Off label use [Unknown]
  - Pain in extremity [Unknown]
  - Muscular weakness [Unknown]
  - Gait disturbance [Unknown]
  - Asthma [Recovering/Resolving]
  - Sensation of foreign body [Unknown]
  - Oropharyngeal pain [Unknown]
  - Cough [Not Recovered/Not Resolved]
  - Nausea [Unknown]
  - Pallor [Unknown]
  - Somnolence [Unknown]
  - Spinal fracture [Unknown]

NARRATIVE: CASE EVENT DATE: 20200122
